FAERS Safety Report 9048665 (Version 1)
Quarter: 2013Q2

REPORT INFORMATION
  Report Type: Spontaneous
  Country: US (occurrence: None)
  Receive Date: 20130130
  Receipt Date: 20130130
  Transmission Date: 20140414
  Serious: Yes (Hospitalization)
  Sender: FDA-Public Use
  Company Number: None

PATIENT
  Age: 78 Year
  Sex: Male
  Weight: 79.5 kg

DRUGS (5)
  1. ERLOTINIB [Suspect]
     Indication: STAPHYLOCOCCAL INFECTION
     Route: 048
     Dates: start: 20090127, end: 02090601
  2. CELECOXIB [Suspect]
     Route: 048
     Dates: start: 20090203, end: 20090601
  3. SYNTHROID [Concomitant]
  4. OMEPRAZOLE [Concomitant]
  5. TYLENOL [Concomitant]

REACTIONS (3)
  - Staphylococcal abscess [None]
  - Mobility decreased [None]
  - Staphylococcal infection [None]
